FAERS Safety Report 9668857 (Version 1)
Quarter: 2013Q4

REPORT INFORMATION
  Report Type: Spontaneous
  Country: CN (occurrence: CN)
  Receive Date: 20131105
  Receipt Date: 20131105
  Transmission Date: 20140711
  Serious: Yes (Hospitalization)
  Sender: FDA-Public Use
  Company Number: PHHY2013CN124228

PATIENT
  Age: 40 Year
  Sex: Male
  Weight: 63 kg

DRUGS (2)
  1. TRILEPTAL / GP 47680 / TRI 476B [Suspect]
     Indication: EPILEPSY
     Route: 048
  2. TRILEPTAL / GP 47680 / TRI 476B [Suspect]
     Dosage: 750 MG, BID
     Route: 048
     Dates: start: 20120924, end: 20120929

REACTIONS (6)
  - Mouth ulceration [Recovering/Resolving]
  - Oropharyngeal pain [Recovering/Resolving]
  - Musculoskeletal discomfort [Recovering/Resolving]
  - Rash [Recovering/Resolving]
  - Papule [Recovering/Resolving]
  - Liver function test abnormal [Recovering/Resolving]
